FAERS Safety Report 14641127 (Version 1)
Quarter: 2018Q1

REPORT INFORMATION
  Report Type: Spontaneous
  Country: US (occurrence: US)
  Receive Date: 20180315
  Receipt Date: 20180315
  Transmission Date: 20180509
  Serious: No
  Sender: FDA-Public Use
  Company Number: US-B.I. PHARMACEUTICALS,INC./RIDGEFIELD-2018-BI-013599

PATIENT
  Age: 64 Year
  Sex: Female

DRUGS (4)
  1. TRADJENTA [Suspect]
     Active Substance: LINAGLIPTIN
     Dosage: ONE TABLET A DAY;  FORM STRENGTH: 5 MG; FORMULATION: TABLET? ACTION(S) TAKEN WITH PRODUCT: DOSE NOT
     Route: 048
     Dates: start: 201712
  2. JANUVIA [Concomitant]
     Active Substance: SITAGLIPTIN PHOSPHATE
     Indication: DIABETES MELLITUS
     Dosage: BID;  FORMULATION: TABLET;
     Route: 048
     Dates: start: 201611
  3. TRADJENTA [Suspect]
     Active Substance: LINAGLIPTIN
     Indication: DIABETES MELLITUS
     Dosage: ONE TABLET A DAY;  FORM STRENGTH: 5 MG; FORMULATION: ACTION(S) TAKEN WITH PRODUCT: DRUG WITHDRAWN
     Route: 048
     Dates: start: 201603, end: 201611
  4. LANTUS [Concomitant]
     Active Substance: INSULIN GLARGINE
     Indication: DIABETES MELLITUS
     Dosage: ONCE A DAY;  FORM STRENGTH: 44 UNITS; FORMULATION: SUBCUTANEOUS
     Route: 061
     Dates: start: 201611

REACTIONS (2)
  - Glycosylated haemoglobin increased [Not Recovered/Not Resolved]
  - Blood glucose increased [Recovered/Resolved]

NARRATIVE: CASE EVENT DATE: 201611
